FAERS Safety Report 25026660 (Version 1)
Quarter: 2025Q1

REPORT INFORMATION
  Report Type: Spontaneous
  Country: US (occurrence: US)
  Receive Date: 20250301
  Receipt Date: 20250301
  Transmission Date: 20250409
  Serious: No
  Sender: SANOFI AVENTIS
  Company Number: US-SA-2025SA056730

PATIENT
  Age: 50 Year
  Sex: Female
  Weight: 99.09 kg

DRUGS (16)
  1. LUMIZYME [Suspect]
     Active Substance: ALGLUCOSIDASE ALFA
     Indication: Glycogen storage disease type II
     Dosage: 4000 MG, QW
     Route: 042
     Dates: start: 20230825
  2. SODIUM CHLORIDE [Concomitant]
     Active Substance: SODIUM CHLORIDE
  3. ACETAMINOPHEN [Concomitant]
     Active Substance: ACETAMINOPHEN
  4. STERILE WATER [Concomitant]
     Active Substance: WATER
  5. FAMOTIDINE [Concomitant]
     Active Substance: FAMOTIDINE
  6. PHENTERMINE HYDROCHLORIDE [Concomitant]
     Active Substance: PHENTERMINE HYDROCHLORIDE
  7. MODAFINIL [Concomitant]
     Active Substance: MODAFINIL
  8. SODIUM CHLORIDE [Concomitant]
     Active Substance: SODIUM CHLORIDE
  9. DIPHENHYDRAMINE HYDROCHLORIDE [Concomitant]
     Active Substance: DIPHENHYDRAMINE HYDROCHLORIDE
  10. ALPRAZOLAM [Concomitant]
     Active Substance: ALPRAZOLAM
  11. LEVOTHYROXINE SODIUM [Concomitant]
     Active Substance: LEVOTHYROXINE SODIUM
  12. SERTRALINE HYDROCHLORIDE [Concomitant]
     Active Substance: SERTRALINE HYDROCHLORIDE
  13. BIOTIN [Concomitant]
     Active Substance: BIOTIN
  14. LIDOCAINE [Concomitant]
     Active Substance: LIDOCAINE
  15. POTASSIUM CITRATE [Concomitant]
     Active Substance: POTASSIUM CITRATE
  16. EPIPEN [Concomitant]
     Active Substance: EPINEPHRINE

REACTIONS (2)
  - Infection [Unknown]
  - Inappropriate schedule of product administration [Unknown]

NARRATIVE: CASE EVENT DATE: 20230825
